FAERS Safety Report 10233734 (Version 1)
Quarter: 2014Q1

REPORT INFORMATION
  Report Type: Spontaneous
  Country: US (occurrence: None)
  Receive Date: 20140306
  Receipt Date: 20140306
  Transmission Date: 20141002
  Serious: Yes (Hospitalization)
  Sender: FDA-Public Use
  Company Number: 163-21880-13112079

PATIENT
  Age: 84 Year
  Sex: Female

DRUGS (4)
  1. REVLIMID (LENALIDOMIDE) (CAPSULES) [Suspect]
     Indication: MYELODYSPLASTIC SYNDROME
     Dosage: 5 MG, 21 IN 21 D
     Route: 048
     Dates: start: 20121002
  2. LOSARTAN POTASSIUM (LOSARTAN POTASSIUM) [Concomitant]
  3. L GLUTAMINE (LEVOGLUTAMINE) [Concomitant]
  4. ATORVASTATIN CALCIUM (ATORVASTATIN CALCIUM) [Concomitant]

REACTIONS (1)
  - Spinal fracture [None]
